FAERS Safety Report 17008203 (Version 1)
Quarter: 2019Q4

REPORT INFORMATION
  Report Type: Spontaneous
  Country: US (occurrence: US)
  Receive Date: 20191108
  Receipt Date: 20191108
  Transmission Date: 20200122
  Serious: No
  Sender: FDA-Public Use
  Company Number: US-009507513-1910USA009837

PATIENT
  Age: 18 Year
  Sex: Female
  Weight: 63.49 kg

DRUGS (1)
  1. NEXPLANON [Suspect]
     Active Substance: ETONOGESTREL
     Indication: CONTRACEPTION
     Dosage: 68 MILLIGRAM, 3 YEARS
     Route: 059
     Dates: start: 2017

REACTIONS (4)
  - Complication associated with device [Not Recovered/Not Resolved]
  - Complication of device removal [Not Recovered/Not Resolved]
  - Weight increased [Not Recovered/Not Resolved]
  - Menstruation irregular [Not Recovered/Not Resolved]

NARRATIVE: CASE EVENT DATE: 201906
